FAERS Safety Report 6348164-7 (Version None)
Quarter: 2009Q3

REPORT INFORMATION
  Report Type: 
  Country: None (occurrence: None)
  Receive Date: 20090908
  Receipt Date: 20090903
  Transmission Date: 20100115
  Serious: Yes (Hospitalization)
  Sender: FDA-Public Use
  Company Number: GXKR2009DE09833

PATIENT
  Age: 70 Year
  Sex: Male

DRUGS (8)
  1. FUROSEMIDE [Suspect]
     Indication: OEDEMA PERIPHERAL
     Dosage: 250 MG, BID, ORAL
     Route: 048
     Dates: start: 20090620
  2. ASPIRIN [Suspect]
     Indication: CORONARY ARTERY DISEASE
     Dosage: 100 MG, QD, ORAL
     Route: 048
     Dates: start: 20070101
  3. AQUAPHOR TABLET (XIPAMIDE) [Suspect]
     Indication: HYPERTENSION
     Dosage: 10 MG, QD, ORAL
     Route: 048
     Dates: start: 20090620
  4. ENOXAPARIN SODIUM [Suspect]
     Indication: CARDIAC PACEMAKER INSERTION
     Dosage: 80 MG, BID, SUBCUTANEOUS
     Route: 058
     Dates: start: 20090605
  5. INSPRA [Suspect]
     Indication: CARDIAC FAILURE
     Dosage: 25 MG, QD, ORAL
     Route: 048
     Dates: start: 20071101
  6. RAMIPRIL [Suspect]
     Indication: HYPERTENSION
     Dosage: 2.5 MG, QD, ORAL
     Route: 048
     Dates: start: 20050101
  7. BISO LICH (BISOPROLOL FUMARATE) FILM-COATED TABLET [Concomitant]
  8. DIGITOXIN TAB [Concomitant]

REACTIONS (3)
  - DRUG INTERACTION [None]
  - HAEMORRHAGE URINARY TRACT [None]
  - RENAL FAILURE ACUTE [None]
